FAERS Safety Report 5975545-3 (Version None)
Quarter: 2008Q4

REPORT INFORMATION
  Report Type: 
  Country: None (occurrence: None)
  Receive Date: 20081202
  Receipt Date: 20081104
  Transmission Date: 20090506
  Serious: No
  Sender: FDA-Public Use
  Company Number: US-BAYER-200837611NA

PATIENT
  Age: 58 Year
  Sex: Male

DRUGS (2)
  1. MAGNEVIST [Suspect]
     Indication: AMNESIA
     Dosage: TOTAL DAILY DOSE: 17 ML
     Route: 042
     Dates: start: 20081031, end: 20081031
  2. AMBIEN [Concomitant]

REACTIONS (2)
  - SNEEZING [None]
  - URTICARIA [None]
